FAERS Safety Report 20104012 (Version 1)
Quarter: 2021Q4

REPORT INFORMATION
  Report Type: Spontaneous
  Country: US (occurrence: US)
  Receive Date: 20211123
  Receipt Date: 20211123
  Transmission Date: 20220304
  Serious: No
  Sender: FDA-Public Use
  Company Number: US-AMNEAL PHARMACEUTICALS-2020-AMRX-03522

PATIENT
  Sex: Female

DRUGS (1)
  1. ISOTRETINOIN [Suspect]
     Active Substance: ISOTRETINOIN
     Indication: Acne
     Dosage: 1 CAPSULES, DAILY
     Route: 065
     Dates: start: 20200731, end: 20201026

REACTIONS (2)
  - Nasal dryness [Recovering/Resolving]
  - Dry skin [Recovering/Resolving]
